FAERS Safety Report 10079257 (Version 1)
Quarter: 2014Q2

REPORT INFORMATION
  Report Type: Spontaneous
  Country: US (occurrence: US)
  Receive Date: 20140415
  Receipt Date: 20140415
  Transmission Date: 20141212
  Serious: Yes (Other)
  Sender: FDA-Public Use
  Company Number: CHPA2014US005281

PATIENT
  Sex: Male

DRUGS (2)
  1. VOLTAREN GEL [Suspect]
     Indication: RIB FRACTURE
     Dosage: UNK
     Route: 061
     Dates: start: 2013
  2. VOLTAREN GEL [Suspect]
     Indication: OFF LABEL USE

REACTIONS (2)
  - Blood glucose decreased [Unknown]
  - Malaise [Unknown]
